FAERS Safety Report 10078579 (Version 2)
Quarter: 2014Q2

REPORT INFORMATION
  Report Type: Spontaneous
  Country: JP (occurrence: JP)
  Receive Date: 20140415
  Receipt Date: 20140429
  Transmission Date: 20141212
  Serious: Yes (Hospitalization)
  Sender: FDA-Public Use
  Company Number: JP-JNJFOC-20140407959

PATIENT
  Age: 75 Year
  Sex: Male
  Weight: 76 kg

DRUGS (10)
  1. XARELTO [Suspect]
     Indication: CEREBROVASCULAR ACCIDENT PROPHYLAXIS
     Route: 048
     Dates: start: 20140306
  2. XARELTO [Suspect]
     Indication: ATRIAL FIBRILLATION
     Route: 048
     Dates: start: 20140306
  3. XARELTO [Suspect]
     Indication: CEREBROVASCULAR ACCIDENT PROPHYLAXIS
     Route: 048
     Dates: start: 20140306
  4. OLMETEC [Concomitant]
     Route: 048
     Dates: start: 20140114
  5. VASOLAN [Concomitant]
     Route: 048
     Dates: end: 20140114
  6. VASOLAN [Concomitant]
     Route: 048
     Dates: start: 20140114
  7. JUVELA [Concomitant]
     Route: 048
  8. LIPITOR [Concomitant]
     Route: 048
     Dates: start: 20140114
  9. MYSLEE [Concomitant]
     Route: 048
     Dates: start: 20140114
  10. DIGOXIN [Concomitant]
     Route: 048

REACTIONS (2)
  - Embolic cerebral infarction [Unknown]
  - Drug ineffective [Unknown]
